FAERS Safety Report 7355135-0 (Version None)
Quarter: 2011Q1

REPORT INFORMATION
  Report Type: 
  Country: None (occurrence: None)
  Receive Date: 20110307
  Receipt Date: 20100531
  Transmission Date: 20110831
  Serious: No
  Sender: FDA-Public Use
  Company Number: AEDEU201000215

PATIENT
  Sex: Male

DRUGS (5)
  1. THEOPHYLLINE [Concomitant]
  2. SALBUTAMOL [Concomitant]
  3. PROLASTIN [Suspect]
     Indication: ALPHA-1 ANTI-TRYPSIN DEFICIENCY
     Dosage: 4 GM;IV
     Route: 042
     Dates: start: 19960101
  4. SPIRIVA [Concomitant]
  5. CORTISONE [Concomitant]

REACTIONS (1)
  - ABDOMINAL PAIN [None]
